FAERS Safety Report 25797295 (Version 2)
Quarter: 2025Q4

REPORT INFORMATION
  Report Type: Spontaneous
  Country: US (occurrence: US)
  Receive Date: 20250912
  Receipt Date: 20251014
  Transmission Date: 20260117
  Serious: No
  Sender: GLAXOSMITHKLINE
  Company Number: US-GSK-US2025104564

PATIENT
  Age: 81 Year
  Sex: Male

DRUGS (3)
  1. TRELEGY ELLIPTA [Suspect]
     Active Substance: FLUTICASONE FUROATE\UMECLIDINIUM BROMIDE\VILANTEROL TRIFENATATE
     Indication: Dyspnoea
     Dosage: 1 PUFF(S), QD, 100/62.5/25MCG
     Dates: start: 202501
  2. TRELEGY ELLIPTA [Suspect]
     Active Substance: FLUTICASONE FUROATE\UMECLIDINIUM BROMIDE\VILANTEROL TRIFENATATE
     Indication: Pneumothorax
  3. ALBUTEROL SULFATE [Suspect]
     Active Substance: ALBUTEROL SULFATE
     Indication: Product used for unknown indication
     Dosage: UNK, QD 1 OR 2 PUFFS AT MOST MAYBE ONCE A DAY

REACTIONS (4)
  - Dyspnoea [Recovering/Resolving]
  - Product use in unapproved indication [Unknown]
  - Drug ineffective for unapproved indication [Unknown]
  - Product complaint [Unknown]

NARRATIVE: CASE EVENT DATE: 20250101
